FAERS Safety Report 17222278 (Version 1)
Quarter: 2020Q1

REPORT INFORMATION
  Report Type: Spontaneous
  Country: US (occurrence: US)
  Receive Date: 20191231
  Receipt Date: 20191231
  Transmission Date: 20200409
  Serious: Yes (Other)
  Sender: FDA-Public Use
  Company Number: None

PATIENT
  Age: 35 Year
  Sex: Female
  Weight: 91.8 kg

DRUGS (1)
  1. ZANTAC [Suspect]
     Active Substance: RANITIDINE HYDROCHLORIDE
     Indication: GASTROOESOPHAGEAL REFLUX DISEASE
     Dosage: ?          QUANTITY:1 TABLET(S);?
     Route: 048
     Dates: start: 20181231, end: 20191230

REACTIONS (7)
  - Eating disorder [None]
  - Menstruation irregular [None]
  - Abdominal discomfort [None]
  - Abdominal distension [None]
  - Dizziness [None]
  - Loss of libido [None]
  - Somnolence [None]

NARRATIVE: CASE EVENT DATE: 20191229
